FAERS Safety Report 8535209-9 (Version None)
Quarter: 2012Q3

REPORT INFORMATION
  Report Type: 
  Country: None (occurrence: None)
  Receive Date: 20120724
  Receipt Date: 20120720
  Transmission Date: 20120928
  Serious: Yes (Death)
  Sender: FDA-Public Use
  Company Number: IT-B.I. PHARMACEUTICALS,INC./RIDGEFIELD-2012-IT-00211IT

PATIENT

DRUGS (2)
  1. PRAMIPEXOLE DIHYDROCHLORIDE [Suspect]
     Indication: PARKINSON'S DISEASE
     Dosage: 1.05 MG
     Dates: start: 20101124
  2. MADOPAR [Suspect]
     Indication: PARKINSON'S DISEASE
     Dosage: 300 MG
     Dates: start: 20101124

REACTIONS (1)
  - RENAL FAILURE ACUTE [None]
